FAERS Safety Report 24943035 (Version 1)
Quarter: 2025Q1

REPORT INFORMATION
  Report Type: Spontaneous
  Country: AU (occurrence: US)
  Receive Date: 20250207
  Receipt Date: 20250207
  Transmission Date: 20250408
  Serious: Yes (Other)
  Sender: COOPERSURGICAL
  Company Number: AU-COOPERSURGICAL, INC.-2025CPS000595

PATIENT
  Age: 32 Year
  Sex: Female
  Weight: 65.76 kg

DRUGS (1)
  1. PARAGARD T 380A [Suspect]
     Active Substance: COPPER
     Route: 015
     Dates: start: 20111101

REACTIONS (7)
  - Reproductive complication associated with device [Not Recovered/Not Resolved]
  - Device breakage [Not Recovered/Not Resolved]
  - Foreign body in reproductive tract [Not Recovered/Not Resolved]
  - Complication of device removal [Not Recovered/Not Resolved]
  - Complication associated with device [Recovered/Resolved]
  - Emotional disorder [Unknown]
  - Pelvic pain [Recovered/Resolved]

NARRATIVE: CASE EVENT DATE: 20170915
